FAERS Safety Report 16767645 (Version 1)
Quarter: 2019Q3

REPORT INFORMATION
  Report Type: Spontaneous
  Country: BR (occurrence: BR)
  Receive Date: 20190903
  Receipt Date: 20190903
  Transmission Date: 20191005
  Serious: Yes (Death, Other)
  Sender: FDA-Public Use
  Company Number: BR-SA-2019SA242044

PATIENT
  Sex: Male

DRUGS (1)
  1. CLEXANE [Suspect]
     Active Substance: ENOXAPARIN SODIUM
     Indication: DEEP VEIN THROMBOSIS
     Dosage: UNK UNK, UNK
     Route: 065

REACTIONS (10)
  - Abdominal distension [Fatal]
  - Mechanical ventilation [Fatal]
  - Shock [Fatal]
  - Death [Fatal]
  - Pancreatic fistula [Fatal]
  - Acute kidney injury [Fatal]
  - Haemoglobin decreased [Fatal]
  - Acute respiratory failure [Fatal]
  - Endotracheal intubation [Fatal]
  - Pulmonary embolism [Fatal]
